FAERS Safety Report 13164387 (Version 6)
Quarter: 2018Q2

REPORT INFORMATION
  Report Type: Spontaneous
  Country: BR (occurrence: BR)
  Receive Date: 20170130
  Receipt Date: 20180515
  Transmission Date: 20180711
  Serious: Yes (Other)
  Sender: FDA-Public Use
  Company Number: BR-LUNDBECK-DKLU2025749

PATIENT
  Age: 26 Year
  Sex: Male

DRUGS (9)
  1. GARDENAL [Suspect]
     Active Substance: PHENOBARBITAL
     Indication: SEIZURE
     Route: 048
  2. DEPAKENE [Suspect]
     Active Substance: VALPROIC ACID
     Indication: SEIZURE
     Route: 048
     Dates: start: 2000
  3. URBANIL [Concomitant]
     Active Substance: CLOBAZAM
     Indication: PRODUCT USED FOR UNKNOWN INDICATION
     Route: 065
  4. GARDENAL [Suspect]
     Active Substance: PHENOBARBITAL
     Indication: SEIZURE
  5. HIDANTAL [Concomitant]
     Active Substance: PHENYTOIN SODIUM
     Indication: PRODUCT USED FOR UNKNOWN INDICATION
     Route: 065
  6. DEPAKENE [Concomitant]
     Active Substance: VALPROIC ACID
     Indication: PRODUCT USED FOR UNKNOWN INDICATION
     Route: 065
     Dates: start: 201603
  7. DIAZEPAM. [Concomitant]
     Active Substance: DIAZEPAM
     Indication: PRODUCT USED FOR UNKNOWN INDICATION
     Route: 065
  8. FRISIUM [Suspect]
     Active Substance: CLOBAZAM
     Indication: SEIZURE
     Route: 048
     Dates: start: 2000
  9. GARDENAL [Suspect]
     Active Substance: PHENOBARBITAL
     Indication: EPILEPSY
     Route: 048
     Dates: start: 1999

REACTIONS (9)
  - Arachnoid cyst [Unknown]
  - Depression [Not Recovered/Not Resolved]
  - Memory impairment [Not Recovered/Not Resolved]
  - Seizure [Not Recovered/Not Resolved]
  - Drug ineffective [Unknown]
  - Weight decreased [Not Recovered/Not Resolved]
  - Anxiety [Not Recovered/Not Resolved]
  - Hallucination [Not Recovered/Not Resolved]
  - Blood test abnormal [Unknown]
